FAERS Safety Report 9447966 (Version 2)
Quarter: 2013Q3

REPORT INFORMATION
  Report Type: Report from Study
  Country: CA (occurrence: CA)
  Receive Date: 20130808
  Receipt Date: 20130812
  Transmission Date: 20140515
  Serious: Yes (Death)
  Sender: FDA-Public Use
  Company Number: PHHY2013CA085064

PATIENT
  Age: 59 Year
  Sex: Female

DRUGS (7)
  1. CLOZARIL [Suspect]
     Indication: SCHIZOAFFECTIVE DISORDER
     Dosage: 100 MG, HS
     Route: 048
     Dates: start: 20010125
  2. RISPERIDONE [Concomitant]
     Dosage: 2 MG, BID
  3. LITHIUM [Concomitant]
     Dosage: 300 MG, BID
  4. PAXIL [Concomitant]
     Dosage: 20 MG, BID
  5. MONTELUKAST [Concomitant]
     Dosage: 10 MG, UNK
  6. SYMBICORT [Concomitant]
     Dosage: 200 MG, BID (2 PUFFS)
  7. APO-SALVENT [Concomitant]
     Dosage: 100 MG, BID (2 PUFFS)

REACTIONS (2)
  - Cardio-respiratory arrest [Fatal]
  - Dyspnoea [Unknown]
